FAERS Safety Report 9375825 (Version 2)
Quarter: 2013Q3

REPORT INFORMATION
  Report Type: Spontaneous
  Country: DE (occurrence: DE)
  Receive Date: 20130628
  Receipt Date: 20130802
  Transmission Date: 20140515
  Serious: Yes (Hospitalization)
  Sender: FDA-Public Use
  Company Number: DE-ASTRAZENECA-2013SE48521

PATIENT
  Sex: Female

DRUGS (1)
  1. SEROQUEL PROLONG [Suspect]
     Route: 048
     Dates: start: 201211

REACTIONS (3)
  - Deficiency anaemia [Not Recovered/Not Resolved]
  - Leukopenia [Recovering/Resolving]
  - Platelet count decreased [Recovered/Resolved]
